FAERS Safety Report 7956402-X (Version None)
Quarter: 2011Q4

REPORT INFORMATION
  Report Type: 
  Country: None (occurrence: None)
  Receive Date: 20111205
  Receipt Date: 20111122
  Transmission Date: 20120403
  Serious: Yes (Hospitalization)
  Sender: FDA-Public Use
  Company Number: US-SANOFI-AVENTIS-2011SA077808

PATIENT
  Age: 67 Year
  Sex: Male
  Weight: 88.4 kg

DRUGS (4)
  1. PLAVIX [Suspect]
     Indication: ANTIPLATELET THERAPY
     Route: 048
     Dates: start: 20100101
  2. PLAVIX [Suspect]
     Route: 048
     Dates: start: 20100101
  3. MAGNESIUM HYDROXIDE TAB [Concomitant]
  4. COUMADIN [Concomitant]

REACTIONS (2)
  - GASTRITIS [None]
  - PAIN [None]
